FAERS Safety Report 14324899 (Version 1)
Quarter: 2017Q4

REPORT INFORMATION
  Report Type: Spontaneous
  Country: US (occurrence: US)
  Receive Date: 20171226
  Receipt Date: 20171226
  Transmission Date: 20180321
  Serious: No
  Sender: FDA-Public Use
  Company Number: US-CLOVIS ONCOLOGY-CLO-2017-001134

PATIENT
  Age: 59 Year
  Sex: Female

DRUGS (4)
  1. RUBRACA [Suspect]
     Active Substance: RUCAPARIB CAMSYLATE
     Dosage: UNK
     Route: 065
     Dates: end: 20170929
  2. RUBRACA [Suspect]
     Active Substance: RUCAPARIB CAMSYLATE
     Indication: OVARIAN CANCER
     Dosage: 600 MG, BID
     Route: 048
     Dates: start: 20170206, end: 20170617
  3. LORAZEPAM. [Concomitant]
     Active Substance: LORAZEPAM
     Indication: DEPRESSION
     Dosage: UNK
     Route: 065
  4. TRIAZOLAM. [Concomitant]
     Active Substance: TRIAZOLAM
     Indication: DEPRESSION
     Dosage: UNK
     Route: 065

REACTIONS (4)
  - Dry mouth [Recovered/Resolved]
  - Constipation [Recovered/Resolved]
  - Decreased appetite [Recovered/Resolved]
  - Therapy cessation [Unknown]

NARRATIVE: CASE EVENT DATE: 201706
